FAERS Safety Report 8171047-7 (Version None)
Quarter: 2012Q1

REPORT INFORMATION
  Report Type: 
  Country: None (occurrence: None)
  Receive Date: 20120228
  Receipt Date: 20120220
  Transmission Date: 20120608
  Serious: Yes (Other)
  Sender: FDA-Public Use
  Company Number: PHHY2012FR016027

PATIENT
  Age: 77 Year
  Sex: Male

DRUGS (1)
  1. OSLIF BREEZHALER [Suspect]
     Dosage: 1 DF, QD
     Dates: start: 20120120

REACTIONS (9)
  - RHINITIS [None]
  - DEAFNESS [None]
  - MUSCLE CONTRACTURE [None]
  - AFFECTIVE DISORDER [None]
  - TACHYCARDIA [None]
  - OEDEMA PERIPHERAL [None]
  - EYE PRURITUS [None]
  - ASTHENIA [None]
  - DRY MOUTH [None]
